FAERS Safety Report 19439449 (Version 1)
Quarter: 2021Q2

REPORT INFORMATION
  Report Type: Spontaneous
  Country: CA (occurrence: CA)
  Receive Date: 20210619
  Receipt Date: 20210619
  Transmission Date: 20210717
  Serious: Yes (Hospitalization, Other)
  Sender: FDA-Public Use
  Company Number: CA-ACCORD-228571

PATIENT
  Age: 61 Year
  Sex: Male

DRUGS (12)
  1. METONIA [Concomitant]
     Active Substance: METOCLOPRAMIDE
  2. CLOPIDOGREL [Concomitant]
     Active Substance: CLOPIDOGREL BISULFATE
  3. EZETIMIBE. [Concomitant]
     Active Substance: EZETIMIBE
  4. HUMULIN N [Concomitant]
     Active Substance: INSULIN HUMAN
     Dosage: SUSPENSION SUBCUTANEOUS
  5. HUMULIN R [Concomitant]
     Active Substance: INSULIN HUMAN
     Dosage: SOLUTION INTRAMUSCULAR
  6. ABRAXANE [Suspect]
     Active Substance: PACLITAXEL
     Indication: CHEMOTHERAPY
     Dosage: POWDER FOR SUSPENSION INTRAVENOUS, INJECTABLE SUSPENSION
  7. BISOPROLOL [Concomitant]
     Active Substance: BISOPROLOL
  8. GEMCITABINE/GEMCITABINE HYDROCHLORIDE [Suspect]
     Active Substance: GEMCITABINE\GEMCITABINE HYDROCHLORIDE
     Indication: CHEMOTHERAPY
  9. JANUVIA [Concomitant]
     Active Substance: SITAGLIPTIN PHOSPHATE
     Route: 048
  10. HYDROMORPHONE/HYDROMORPHONE HYDROCHLORIDE [Concomitant]
     Active Substance: HYDROMORPHONE
  11. METFORMIN [Concomitant]
     Active Substance: METFORMIN HYDROCHLORIDE
  12. ROSUVASTATIN/ROSUVASTATIN CALCIUM [Concomitant]
     Active Substance: ROSUVASTATIN CALCIUM

REACTIONS (2)
  - Febrile neutropenia [Recovering/Resolving]
  - Colitis [Recovering/Resolving]
